FAERS Safety Report 8603728-2 (Version None)
Quarter: 2012Q3

REPORT INFORMATION
  Report Type: 
  Country: None (occurrence: None)
  Receive Date: 20120817
  Receipt Date: 20120731
  Transmission Date: 20120928
  Serious: No
  Sender: FDA-Public Use
  Company Number: US-ASTRAZENECA-2012SE54924

PATIENT
  Age: 54 Year
  Sex: Male

DRUGS (3)
  1. SYMBICORT [Concomitant]
  2. NORBIR [Interacting]
     Route: 065
  3. TOPROL-XL [Suspect]
     Route: 048

REACTIONS (1)
  - DRUG INTERACTION [None]
